FAERS Safety Report 24918574 (Version 3)
Quarter: 2025Q1

REPORT INFORMATION
  Report Type: Report from Study
  Country: US (occurrence: US)
  Receive Date: 20250203
  Receipt Date: 20250317
  Transmission Date: 20250409
  Serious: No
  Sender: SANDOZ
  Company Number: US-SANDOZ-SDZ2025US006406

PATIENT
  Age: 10 Year
  Sex: Male

DRUGS (4)
  1. OMNITROPE [Suspect]
     Active Substance: SOMATROPIN
     Dosage: 0.85 MG, QD, 5 MG / 1.5 ML SOLUTION FOR INJECTION
     Route: 058
     Dates: start: 20250130
  2. OMNITROPE [Suspect]
     Active Substance: SOMATROPIN
     Dosage: 0.85 MG, QD, 5 MG / 1.5 ML SOLUTION FOR INJECTION
     Route: 058
     Dates: start: 20250130
  3. OMNITROPE [Suspect]
     Active Substance: SOMATROPIN
     Indication: Hypopituitarism
     Dosage: 0.85 MG, QD
     Route: 058
     Dates: start: 20241223
  4. OMNITROPE [Suspect]
     Active Substance: SOMATROPIN
     Indication: Hypopituitarism
     Dosage: 0.85 MG, QD
     Route: 058
     Dates: start: 20241223

REACTIONS (5)
  - Injection site bruising [Not Recovered/Not Resolved]
  - Injection site reaction [Unknown]
  - Injection site pain [Unknown]
  - Incorrect dose administered by device [Unknown]
  - Wrong technique in device usage process [Unknown]

NARRATIVE: CASE EVENT DATE: 20250130
